FAERS Safety Report 6391080-5 (Version None)
Quarter: 2009Q4

REPORT INFORMATION
  Report Type: 
  Country: None (occurrence: None)
  Receive Date: 20091006
  Receipt Date: 20091006
  Transmission Date: 20100525
  Serious: Yes (Other)
  Sender: FDA-Public Use
  Company Number: None

PATIENT
  Age: 6 Year
  Sex: Male
  Weight: 21.3191 kg

DRUGS (1)
  1. VYVANSE [Suspect]
     Indication: ATTENTION DEFICIT/HYPERACTIVITY DISORDER
     Dosage: 40 MG  DAILY PO
     Route: 048
     Dates: start: 20090625, end: 20091002

REACTIONS (5)
  - DEPRESSION [None]
  - MOOD SWINGS [None]
  - MORBID THOUGHTS [None]
  - PSYCHOTIC DISORDER [None]
  - SUICIDAL IDEATION [None]
